FAERS Safety Report 9321702 (Version 6)
Quarter: 2013Q3

REPORT INFORMATION
  Report Type: Report from Study
  Country: US (occurrence: US)
  Receive Date: 20130531
  Receipt Date: 20130807
  Transmission Date: 20140515
  Serious: Yes (Hospitalization)
  Sender: FDA-Public Use
  Company Number: US-JNJFOC-20130518458

PATIENT
  Age: 12 Year
  Sex: Female
  Weight: 29.7 kg

DRUGS (20)
  1. REMICADE [Suspect]
     Indication: CROHN^S DISEASE
     Route: 042
     Dates: start: 20110714, end: 20121112
  2. HUMIRA [Concomitant]
     Indication: CROHN^S DISEASE
     Route: 065
     Dates: start: 20121203
  3. 5-ASA [Concomitant]
     Route: 048
  4. 5-ASA [Concomitant]
     Route: 054
  5. PREDNISONE [Concomitant]
     Route: 065
  6. ANTIBIOTICS [Concomitant]
     Indication: INFLAMMATORY BOWEL DISEASE
     Route: 065
  7. VITAMIN D [Concomitant]
     Route: 065
  8. ACETAMINOPHEN [Concomitant]
     Route: 065
  9. FERROUS SULPHATE [Concomitant]
     Route: 065
  10. HYDROCORTISONE [Concomitant]
     Route: 065
  11. MEGACE [Concomitant]
     Route: 065
  12. PRILOSEC [Concomitant]
     Route: 065
  13. PSEUDOEPHEDRINE [Concomitant]
     Route: 065
  14. CEFTRIAXONE [Concomitant]
     Route: 065
  15. VANCOMYCIN [Concomitant]
     Route: 065
  16. CALCIUM [Concomitant]
     Route: 065
  17. MULTIVITAMINES [Concomitant]
     Route: 065
  18. FLUTICASONE [Concomitant]
     Route: 065
  19. FOLATE [Concomitant]
     Route: 065
  20. CALMOSEPTINE [Concomitant]
     Route: 065

REACTIONS (1)
  - Failure to thrive [Not Recovered/Not Resolved]
